FAERS Safety Report 4648532-5 (Version None)
Quarter: 2005Q2

REPORT INFORMATION
  Report Type: 
  Country: None (occurrence: None)
  Receive Date: 20050427
  Receipt Date: 20050411
  Transmission Date: 20051028
  Serious: No
  Sender: FDA-Public Use
  Company Number: 30924

PATIENT
  Age: 18 Year
  Sex: Male

DRUGS (1)
  1. TRAVATAN [Suspect]
     Indication: GLAUCOMA
     Dosage: 1 GTT OU QD; OPHT
     Route: 047
     Dates: start: 20040917, end: 20050128

REACTIONS (2)
  - RETINAL DETACHMENT [None]
  - VISUAL ACUITY REDUCED [None]
